FAERS Safety Report 6412587-8 (Version None)
Quarter: 2009Q4

REPORT INFORMATION
  Report Type: 
  Country: None (occurrence: None)
  Receive Date: 20091023
  Receipt Date: 20091009
  Transmission Date: 20100525
  Serious: Yes (Other)
  Sender: FDA-Public Use
  Company Number: PHHY2009BR43786

PATIENT
  Sex: Male

DRUGS (2)
  1. DIOVAN [Suspect]
     Dosage: 160 MG, UNK
  2. DIOVAN HCT [Suspect]
     Dosage: 160/12.5 MG

REACTIONS (2)
  - DRUG DISPENSING ERROR [None]
  - HYPERTENSION [None]
